FAERS Safety Report 17792763 (Version 1)
Quarter: 2020Q2

REPORT INFORMATION
  Report Type: Spontaneous
  Country: JP (occurrence: JP)
  Receive Date: 20200515
  Receipt Date: 20200515
  Transmission Date: 20200714
  Serious: Yes (Other)
  Sender: FDA-Public Use
  Company Number: JP-JAZZ-2020-JP-006442

PATIENT
  Age: 8 Year
  Sex: Male

DRUGS (2)
  1. RECOMODULIN [Suspect]
     Active Substance: THROMBOMODULIN ALFA
     Indication: PRODUCT USED FOR UNKNOWN INDICATION
  2. DEFITELIO [Suspect]
     Active Substance: DEFIBROTIDE SODIUM
     Indication: VENOOCCLUSIVE LIVER DISEASE
     Dosage: UNKNOWN DOSE
     Route: 042
     Dates: start: 20200414, end: 20200424

REACTIONS (3)
  - Haemothorax [Recovering/Resolving]
  - Off label use [Unknown]
  - Diaphragmatic injury [Recovering/Resolving]

NARRATIVE: CASE EVENT DATE: 20200414
